FAERS Safety Report 7249799 (Version 3)
Quarter: 2013Q1

REPORT INFORMATION
  Report Type: Spontaneous
  Country: US (occurrence: None)
  Receive Date: 20100104
  Receipt Date: 20121102
  Transmission Date: 20140127
  Serious: Yes (Hospitalization, Other)
  Sender: FDA-Public Use
  Company Number: 20091208CINRY1298

PATIENT
  Age: 29 Year
  Sex: Male

DRUGS (6)
  1. CINRYZE (C1 ESTERASE INHIBITOR (HUMAN)) (500 UNIT, INJECTION FOR INFUSION) (C1 ESTERASE INHIBITOR (HUMAN)) [Suspect]
     Indication: HEREDITARY ANGIOEDEMA
     Dosage: (500 UNIT, MONDAY AND WEDNESDAY), INTRAVENOUS
     Route: 042
     Dates: start: 2008
  2. CINRYZE (C1 ESTERASE INHIBITOR (HUMAN)) (500 UNIT, INJECTION FOR INFUSION) (C1 ESTERASE INHIBITOR (HUMAN)) [Suspect]
     Indication: PROPHYLAXIS
     Dosage: (500 UNIT, MONDAY AND WEDNESDAY), INTRAVENOUS
     Route: 042
     Dates: start: 2008
  3. ECALLANTIDE [Suspect]
     Indication: HEREDITARY ANGIOEDEMA
     Dosage: 2 DOSES 4 HOURS APART (AS REQUIRED)
     Dates: start: 200804
  4. DANAZOL [Concomitant]
  5. NASONEX [Concomitant]
  6. ASTELIN (DIPROPHYLLINE) [Concomitant]

REACTIONS (1)
  - Chronic myeloid leukaemia [None]
